FAERS Safety Report 5681361-2 (Version None)
Quarter: 2008Q1

REPORT INFORMATION
  Report Type: 
  Country: None (occurrence: None)
  Receive Date: 20080326
  Receipt Date: 20070724
  Transmission Date: 20080703
  Serious: No
  Sender: FDA-Public Use
  Company Number: US-BAYER-US-2007-002656

PATIENT
  Age: 45 Year
  Sex: Female
  Weight: 70 kg

DRUGS (3)
  1. MIRENA [Suspect]
     Indication: MENORRHAGIA
     Route: 015
     Dates: start: 20060901, end: 20070124
  2. MIRENA [Suspect]
     Route: 015
     Dates: start: 20070207, end: 20070309
  3. DETROL [Concomitant]

REACTIONS (1)
  - INTRA-UTERINE CONTRACEPTIVE DEVICE EXPELLED [None]
